FAERS Safety Report 6340785-0 (Version None)
Quarter: 2009Q3

REPORT INFORMATION
  Report Type: 
  Country: None (occurrence: None)
  Receive Date: 20090904
  Receipt Date: 20090825
  Transmission Date: 20100115
  Serious: Yes (Hospitalization)
  Sender: FDA-Public Use
  Company Number: KR-JNJFOC-20090808062

PATIENT
  Age: 37 Year
  Sex: Male

DRUGS (1)
  1. INFLIXIMAB [Suspect]
     Indication: ANKYLOSING SPONDYLITIS
     Dosage: 3 CYCLES; AT WEEK 0, 2 AND 6
     Route: 042

REACTIONS (2)
  - ANKYLOSING SPONDYLITIS [None]
  - DISSEMINATED TUBERCULOSIS [None]
